FAERS Safety Report 10252000 (Version 2)
Quarter: 2014Q2

REPORT INFORMATION
  Report Type: Spontaneous
  Country: US (occurrence: US)
  Receive Date: 20140623
  Receipt Date: 20140624
  Transmission Date: 20141212
  Serious: No
  Sender: FDA-Public Use
  Company Number: US-BAYER-2014-083034

PATIENT
  Age: 18 Year
  Sex: Female

DRUGS (1)
  1. FINACEA [Suspect]
     Indication: ACNE
     Dosage: ONCE A DAY
     Route: 061
     Dates: start: 20140423, end: 201405

REACTIONS (4)
  - Acne [None]
  - Facial pain [None]
  - Off label use [None]
  - Skin disorder [None]
